FAERS Safety Report 9165877 (Version 1)
Quarter: 2013Q1

REPORT INFORMATION
  Report Type: Spontaneous
  Country: US (occurrence: None)
  Receive Date: 20130314
  Receipt Date: 20130314
  Transmission Date: 20140127
  Serious: Yes (Life-Threatening, Other)
  Sender: FDA-Public Use
  Company Number: None

PATIENT
  Age: 46 Year
  Sex: Male
  Weight: 74.84 kg

DRUGS (4)
  1. RISPERIDOL [Suspect]
     Indication: SCHIZOPHRENIA, PARANOID TYPE
     Dosage: 2I/2-3MG, DAILY,PO
  2. UNSPECIFIED INGREDIENT [Suspect]
     Indication: SCHIZOPHRENIA, PARANOID TYPE
     Route: 048
     Dates: start: 201105, end: 201108
  3. UNSPECIFIED INGREDIENT [Suspect]
     Route: 048
     Dates: start: 201105, end: 201108
  4. HCTZ [Concomitant]

REACTIONS (2)
  - Amnesia [None]
  - Hypertension [None]
